FAERS Safety Report 5692365-8 (Version None)
Quarter: 2008Q2

REPORT INFORMATION
  Report Type: 
  Country: None (occurrence: None)
  Receive Date: 20080402
  Receipt Date: 20080328
  Transmission Date: 20081010
  Serious: Yes (Hospitalization)
  Sender: FDA-Public Use
  Company Number: B0514691A

PATIENT
  Age: 2 Year
  Sex: Female

DRUGS (6)
  1. ZIDOVUDINE [Suspect]
     Indication: HIV INFECTION
  2. ABACAVIR [Suspect]
     Indication: HIV INFECTION
  3. LAMIVUDINE [Suspect]
     Indication: HIV INFECTION
  4. NEVIRAPINE [Suspect]
     Indication: HIV INFECTION
  5. CO-TRIMOXAZOLE [Suspect]
  6. MULTI-VITAMIN [Concomitant]

REACTIONS (6)
  - ANAEMIA [None]
  - EYE DISCHARGE [None]
  - EYE PRURITUS [None]
  - NEUTROPENIA [None]
  - PALLOR [None]
  - RHINORRHOEA [None]
